FAERS Safety Report 5370757-4 (Version None)
Quarter: 2007Q2

REPORT INFORMATION
  Report Type: 
  Country: None (occurrence: None)
  Receive Date: 20070618
  Receipt Date: 20061015
  Transmission Date: 20071010
  Serious: Yes (Other)
  Sender: FDA-Public Use
  Company Number: PHEH2006US13003

PATIENT

DRUGS (2)
  1. GLEEVEC [Suspect]
     Dosage: 800 MG, , ORAL; ORAL
     Route: 048
     Dates: start: 20040101, end: 20060101
  2. GLEEVEC [Suspect]
     Dosage: 800 MG, , ORAL; ORAL
     Route: 048
     Dates: start: 20060101, end: 20060101

REACTIONS (2)
  - PERIORBITAL OEDEMA [None]
  - RETINAL HAEMORRHAGE [None]
